FAERS Safety Report 7265727-5 (Version None)
Quarter: 2011Q1

REPORT INFORMATION
  Report Type: 
  Country: None (occurrence: None)
  Receive Date: 20110131
  Receipt Date: 20110117
  Transmission Date: 20110831
  Serious: Yes (Other)
  Sender: FDA-Public Use
  Company Number: GB-ELI_LILLY_AND_COMPANY-GB201011006971

PATIENT
  Sex: Male
  Weight: 115 kg

DRUGS (15)
  1. METFORMIN [Suspect]
     Indication: TYPE 2 DIABETES MELLITUS
     Dosage: 2 G, UNK
     Dates: start: 20070425
  2. TAMSULOSIN HCL [Concomitant]
     Dates: start: 20071111
  3. DILTIAZEM [Concomitant]
     Indication: ANGINA PECTORIS
     Dates: start: 20070215
  4. GLICLAZIDE [Concomitant]
     Indication: DIABETES MELLITUS
     Dates: start: 20071023
  5. BENDROFLUMETHIAZIDE [Concomitant]
     Indication: HYPERTENSION
     Dates: start: 20080212
  6. SIMVASTATIN [Concomitant]
     Indication: ARTERIOSCLEROSIS CORONARY ARTERY
     Dates: start: 20070131
  7. RAMIPRIL [Concomitant]
     Indication: HYPERTENSION
     Dates: start: 20071128
  8. EXENATIDE [Suspect]
     Indication: TYPE 2 DIABETES MELLITUS
     Dosage: 10 UG, 2/D
     Route: 058
     Dates: start: 20100427, end: 20100706
  9. NICORANDIL [Concomitant]
     Dates: start: 20070215
  10. INSULIN GLARGINE [Suspect]
     Indication: TYPE 2 DIABETES MELLITUS
     Dosage: 12 U, UNK
     Dates: start: 20090721
  11. DUTASTERIDE [Concomitant]
     Dates: start: 20071111
  12. LANSOPRAZOLE [Concomitant]
     Dates: start: 20070111
  13. ASPIRIN [Concomitant]
     Dates: start: 20071111
  14. TRAMADOL HCL [Concomitant]
     Indication: ANGIOPATHY
     Dates: start: 20071111
  15. NITROGLYCERIN [Concomitant]
     Indication: ANGINA PECTORIS
     Dates: start: 20070215

REACTIONS (2)
  - HEPATIC ENZYME INCREASED [None]
  - PANCREATIC CARCINOMA [None]
